FAERS Safety Report 14337225 (Version 1)
Quarter: 2017Q4

REPORT INFORMATION
  Report Type: Spontaneous
  Country: RU (occurrence: RU)
  Receive Date: 20171229
  Receipt Date: 20171229
  Transmission Date: 20180321
  Serious: Yes (Other)
  Sender: FDA-Public Use
  Company Number: RU-JNJFOC-20171235060

PATIENT
  Age: 25 Year
  Sex: Female

DRUGS (2)
  1. XARELTO [Suspect]
     Active Substance: RIVAROXABAN
     Indication: PRODUCT USED FOR UNKNOWN INDICATION
     Route: 048
  2. YARINA [Suspect]
     Active Substance: DROSPIRENONE\ETHINYL ESTRADIOL
     Indication: SPONTANEOUS HAEMORRHAGE
     Route: 048

REACTIONS (7)
  - Menstrual disorder [Unknown]
  - Hypercoagulation [Unknown]
  - Abdominal pain lower [Unknown]
  - Thrombosis [Unknown]
  - Product use in unapproved indication [Unknown]
  - Off label use [Unknown]
  - Vasodilatation [Unknown]
